FAERS Safety Report 5848855 (Version 5)
Quarter: 2012Q4

REPORT INFORMATION
  Report Type: 
  Country: DE (occurrence: DE)
  Receive Date: 20050729
  Receipt Date: 20121211
  Transmission Date: 20130627
  Serious: Yes (Death, Life-Threatening, Hospitalization, Other)
  Sender: FDA-Public Use
  Company Number: PHHO2005DE11666

PATIENT
  Age: 64 Year
  Sex: Male

DRUGS (34)
  1. CYCLOSPORIN A [Suspect]
     Indication: RENAL TRANSPLANT
     Dosage: 170 mg, BID
     Route: 048
     Dates: start: 20040630, end: 20041105
  2. MYCOPHENOLATE MOFETIL [Suspect]
     Indication: RENAL TRANSPLANT
     Dosage: 1 g, BID
     Route: 048
     Dates: start: 20040630, end: 20041012
  3. MYCOPHENOLATE MOFETIL [Suspect]
     Dosage: 250 mg, BID
     Route: 048
     Dates: start: 20041013, end: 20050519
  4. MYCOPHENOLATE MOFETIL [Suspect]
     Dosage: 1000 mg, QD
     Dates: start: 20060526
  5. PREDNISOLONE [Suspect]
     Indication: RENAL TRANSPLANT
     Dosage: 500 mg, QD
     Route: 042
     Dates: start: 20040630, end: 20040701
  6. PREDNISOLONE [Suspect]
     Dosage: 75 mg, QD
     Route: 048
     Dates: start: 20040701, end: 20040701
  7. PREDNISOLONE [Suspect]
     Dosage: 100 mg, QD
     Route: 048
     Dates: start: 20040702, end: 20041018
  8. PREDNISOLONE [Suspect]
     Dosage: 250 mg, QD
     Route: 042
     Dates: start: 20041019, end: 20041020
  9. PREDNISOLONE [Suspect]
     Dosage: NO TREATMENT
     Dates: start: 20041021, end: 20041021
  10. PREDNISOLONE [Suspect]
     Dosage: 100 mg, QD
     Route: 048
     Dates: start: 20041022
  11. DACLIZUMAB [Concomitant]
     Indication: RENAL TRANSPLANT
     Dosage: 2 mg/kg, (170mg) ONCE
     Route: 042
     Dates: start: 20040630, end: 20040713
  12. DACLIZUMAB [Concomitant]
     Dosage: 85 mg, once per 2 weeks for 4 weeks
     Route: 042
     Dates: start: 20040714
  13. TACROLIMUS [Concomitant]
     Indication: RENAL TRANSPLANT
     Dosage: UNK, UNK
     Dates: start: 20041104
  14. PANTOZOL [Concomitant]
  15. BELOC ZOK [Concomitant]
  16. EUTHYROX [Concomitant]
  17. SPASMEX [Concomitant]
  18. UNACID [Concomitant]
  19. KEPINOL [Concomitant]
  20. ACETYLCYSTEINE [Concomitant]
  21. ASPIRIN [Concomitant]
  22. CIPROFLOXACIN [Concomitant]
  23. DIGITOXIN [Concomitant]
  24. FUROSEMID [Concomitant]
  25. FLUVASTATIN [Concomitant]
  26. KALIUM-DURILES [Concomitant]
  27. RISEDRONATE SODIUM [Concomitant]
  28. TEMAZEPAM [Concomitant]
  29. ISONIAZID [Concomitant]
  30. ENOXAPARIN SODIUM [Concomitant]
  31. CLOPIDOGREL [Concomitant]
  32. COLCHICUM AUTUMNALE [Concomitant]
  33. TORASEMIDE [Concomitant]
  34. SULTAMICILLIN [Concomitant]

REACTIONS (13)
  - Abdominal hernia [Recovered/Resolved]
  - Aortic valve stenosis [Fatal]
  - Hernia obstructive [Recovered/Resolved]
  - Gastrointestinal necrosis [Recovered/Resolved]
  - Myocardial infarction [Recovered/Resolved]
  - Hypervolaemia [Recovered/Resolved]
  - Tachyarrhythmia [Recovered/Resolved]
  - Angina pectoris [Recovered/Resolved]
  - Toxicity to various agents [Unknown]
  - Seroma [Unknown]
  - Kidney transplant rejection [Unknown]
  - Atrial fibrillation [Not Recovered/Not Resolved]
  - Acute myocardial infarction [Recovered/Resolved]
